FAERS Safety Report 5084551-5 (Version None)
Quarter: 2006Q3

REPORT INFORMATION
  Report Type: 
  Country: None (occurrence: None)
  Receive Date: 20060821
  Receipt Date: 20060811
  Transmission Date: 20061208
  Serious: Yes (Hospitalization)
  Sender: FDA-Public Use
  Company Number: DE-JNJFOC-20060402873

PATIENT
  Age: 59 Year
  Sex: Female
  Weight: 71 kg

DRUGS (8)
  1. REMICADE [Suspect]
     Route: 042
  2. REMICADE [Suspect]
     Route: 042
  3. REMICADE [Suspect]
     Route: 042
  4. REMICADE [Suspect]
     Route: 042
  5. REMICADE [Suspect]
     Indication: PSORIASIS
     Route: 042
  6. L-THYROXINE [Concomitant]
     Indication: HYPOTHYROIDISM
     Route: 065
  7. MOXONIDINE [Concomitant]
     Indication: HYPERTENSION
     Route: 065
  8. IRBESARTAN [Concomitant]
     Indication: HYPERTENSION
     Route: 065

REACTIONS (6)
  - ALANINE AMINOTRANSFERASE INCREASED [None]
  - ASPARTATE AMINOTRANSFERASE INCREASED [None]
  - CIRCULATORY COLLAPSE [None]
  - GAMMA-GLUTAMYLTRANSFERASE INCREASED [None]
  - HYPERLIPIDAEMIA [None]
  - SYNCOPE [None]
